FAERS Safety Report 5312696-0 (Version None)
Quarter: 2007Q2

REPORT INFORMATION
  Report Type: 
  Country: None (occurrence: None)
  Receive Date: 20070430
  Receipt Date: 20070424
  Transmission Date: 20071010
  Serious: Yes (Hospitalization)
  Sender: FDA-Public Use
  Company Number: 2007UW08046

PATIENT
  Sex: Female
  Weight: 2.1 kg

DRUGS (1)
  1. SELOZOK [Suspect]
     Route: 015
     Dates: start: 20050101

REACTIONS (6)
  - BRADYCARDIA NEONATAL [None]
  - CARDIAC MURMUR [None]
  - DRUG EXPOSURE DURING PREGNANCY [None]
  - DYSPNOEA [None]
  - NEONATAL DISORDER [None]
  - PREMATURE BABY [None]
